FAERS Safety Report 23943100 (Version 3)
Quarter: 2024Q2

REPORT INFORMATION
  Report Type: Spontaneous
  Country: ES (occurrence: ES)
  Receive Date: 20240605
  Receipt Date: 20240615
  Transmission Date: 20240715
  Serious: Yes (Other)
  Sender: FDA-Public Use
  Company Number: ES-ABBVIE-5787659

PATIENT
  Age: 62 Year
  Sex: Male

DRUGS (2)
  1. RINVOQ [Suspect]
     Active Substance: UPADACITINIB
     Indication: Rheumatoid arthritis
     Route: 048
     Dates: start: 202302, end: 20240416
  2. METHOTREXATE [Concomitant]
     Active Substance: METHOTREXATE
     Indication: Rheumatoid arthritis
     Dates: start: 202108, end: 202306

REACTIONS (14)
  - Lung cancer metastatic [Unknown]
  - Pulmonary mass [Unknown]
  - Pleural effusion [Unknown]
  - Lung infiltration [Unknown]
  - Chronic obstructive pulmonary disease [Unknown]
  - Dyspnoea [Unknown]
  - Cough [Unknown]
  - Musculoskeletal pain [Unknown]
  - Prostatic disorder [Unknown]
  - Tumour marker increased [Unknown]
  - Back pain [Unknown]
  - Lymphadenopathy [Unknown]
  - Weight decreased [Unknown]
  - Chest injury [Unknown]

NARRATIVE: CASE EVENT DATE: 20240101
